FAERS Safety Report 4679814-9 (Version None)
Quarter: 2005Q2

REPORT INFORMATION
  Report Type: 
  Country: None (occurrence: None)
  Receive Date: 20050531
  Receipt Date: 20050525
  Transmission Date: 20051028
  Serious: Yes (Other)
  Sender: FDA-Public Use
  Company Number: A0560266A

PATIENT
  Sex: 0

DRUGS (1)
  1. AVANDIA [Suspect]
     Dosage: ORAL
     Route: 048

REACTIONS (2)
  - RETINOPATHY [None]
  - VISUAL DISTURBANCE [None]
